FAERS Safety Report 7684285-4 (Version None)
Quarter: 2011Q3

REPORT INFORMATION
  Report Type: 
  Country: None (occurrence: None)
  Receive Date: 20110815
  Receipt Date: 20110801
  Transmission Date: 20111222
  Serious: No
  Sender: FDA-Public Use
  Company Number: US-B.I. PHARMACEUTICALS,INC./RIDGEFIELD-2011-BP-18910BP

PATIENT
  Sex: Female

DRUGS (9)
  1. ZITHROMAX [Concomitant]
     Indication: CHRONIC OBSTRUCTIVE PULMONARY DISEASE
  2. DIGOXIN [Concomitant]
     Indication: ATRIAL FIBRILLATION
  3. VITAMIN TAB [Concomitant]
     Indication: PROPHYLAXIS
  4. PRILOSEC [Concomitant]
     Indication: ABDOMINAL DISCOMFORT
  5. CALCIUM CARBONATE [Concomitant]
     Indication: OSTEOPENIA
  6. LASIX [Concomitant]
     Indication: PULMONARY HYPERTENSION
  7. CO Q10 [Concomitant]
     Indication: PROPHYLAXIS
  8. FISH OIL [Concomitant]
     Indication: PROPHYLAXIS
  9. PRADAXA [Suspect]
     Indication: ATRIAL FIBRILLATION
     Dosage: 300 MG
     Route: 048
     Dates: start: 20110523

REACTIONS (3)
  - CONTUSION [None]
  - SOMNOLENCE [None]
  - ALOPECIA [None]
